FAERS Safety Report 7933990-0 (Version None)
Quarter: 2011Q4

REPORT INFORMATION
  Report Type: 
  Country: None (occurrence: None)
  Receive Date: 20111122
  Receipt Date: 20111117
  Transmission Date: 20120403
  Serious: Yes (Hospitalization)
  Sender: FDA-Public Use
  Company Number: PHHY2011NL101312

PATIENT
  Sex: Male

DRUGS (16)
  1. ZOMETA [Suspect]
  2. PRIMPERAN TAB [Concomitant]
     Dosage: 20 MG, PRN
  3. BISACODYL [Concomitant]
     Dosage: 5 MG, UNK
  4. AMOXICILLIN [Concomitant]
     Dosage: 500 MG, UNK
  5. PRAVASTATIN [Concomitant]
     Dosage: 40 MG, UNK
  6. ACETAMINOPHEN [Concomitant]
     Dosage: 500 MG, 4DD500MG
  7. OXYCODONE HCL [Concomitant]
     Dosage: 5 MG, 2DD5MG
  8. OMEPRAZOLE [Concomitant]
     Dosage: 20 MG, 2DD20MG
  9. MOVICOLON [Concomitant]
  10. LEUPROLIDE ACETATE [Concomitant]
     Dosage: 3DD1 PACKAGE
  11. TRENTAL [Concomitant]
     Dosage: 400 MG, UNK
  12. FLUOXETINE [Concomitant]
     Dosage: 20 MG, 1DD20MG
  13. DURAGESIC-100 [Concomitant]
     Dosage: 25 UG, 25UG/H
  14. FITOMENADION [Concomitant]
  15. GAVISCON [Concomitant]
     Dosage: 250 MG, UNK
  16. ZOFRAN [Concomitant]
     Dosage: 8 MG, 3DD8MG

REACTIONS (3)
  - GOUT [None]
  - LUNG INFILTRATION [None]
  - ARTHRITIS [None]
